FAERS Safety Report 5077021-1 (Version None)
Quarter: 2006Q3

REPORT INFORMATION
  Report Type: 
  Country: None (occurrence: None)
  Receive Date: 20060810
  Receipt Date: 20060731
  Transmission Date: 20061208
  Serious: Yes (Other)
  Sender: FDA-Public Use
  Company Number: PHEH2006US09757

PATIENT

DRUGS (2)
  1. TRILEPTAL [Suspect]
  2. MESALAMINE [Concomitant]

REACTIONS (1)
  - ALVEOLITIS ALLERGIC [None]
